FAERS Safety Report 4590501-8 (Version None)
Quarter: 2005Q1

REPORT INFORMATION
  Report Type: 
  Country: None (occurrence: None)
  Receive Date: 20050217
  Receipt Date: 20050211
  Transmission Date: 20050727
  Serious: Yes (Hospitalization)
  Sender: FDA-Public Use
  Company Number: 212395

PATIENT
  Age: 35 Year
  Sex: Female

DRUGS (3)
  1. HERCEPTIN [Suspect]
     Indication: BREAST CANCER
     Dosage: SEE IMAGE
     Route: 042
     Dates: start: 20050126, end: 20050126
  2. TAXOTERE [Suspect]
     Indication: BREAST CANCER
     Dosage: 75MG/M2
     Dates: start: 20050127
  3. CARBOPLATIN [Suspect]
     Indication: BREAST CANCER
     Dosage: 6 AUC, Q3W, INTRAVENOUS
     Route: 042
     Dates: start: 20050127

REACTIONS (4)
  - FEBRILE NEUTROPENIA [None]
  - HAEMOGLOBIN DECREASED [None]
  - PLATELET COUNT DECREASED [None]
  - PNEUMONIA [None]
